FAERS Safety Report 6151444 (Version 5)
Quarter: 2020Q3

REPORT INFORMATION
  Report Type: Report from Study
  Country: FR (occurrence: FR)
  Receive Date: 20061023
  Receipt Date: 20070917
  Transmission Date: 20201105
  Serious: Yes (Death, Hospitalization)
  Sender: FDA-Public Use
  Company Number: FR-ROCHE-459405

PATIENT
  Age: 53 Year
  Sex: Female
  Weight: 76 kg

DRUGS (7)
  1. FELODIPINE. [Concomitant]
     Active Substance: FELODIPINE
     Dates: start: 2003, end: 20060809
  2. NAVELBINE [Concomitant]
     Active Substance: VINORELBINE TARTRATE
     Dates: start: 20060601, end: 20060725
  3. CAPECITABINE. [Suspect]
     Active Substance: CAPECITABINE
     Indication: PRODUCT USED FOR UNKNOWN INDICATION
     Route: 065
     Dates: start: 20060601, end: 20060801
  4. IBANDRONIC ACID. [Suspect]
     Active Substance: IBANDRONIC ACID
     Indication: NEOPLASM PROPHYLAXIS
     Dosage: INFUSION OVER 60 MINUTES.
     Route: 042
     Dates: start: 20060209
  5. ASCORBIC ACID\FERROUS SULFATE [Concomitant]
     Active Substance: ASCORBIC ACID\FERROUS SULFATE
     Dosage: DRUG REPORTED AS ^TARDYFERON 80^.
     Dates: start: 2005, end: 20060809
  6. UNCLASSIFIED DRUG [Concomitant]
     Dosage: DRUG REPORTED AS ^FOZITEL 20^.
     Dates: start: 2003, end: 20060809
  7. UNSPECIFIED INGREDIENT [Concomitant]
     Active Substance: UNSPECIFIED INGREDIENT
     Dates: start: 2003, end: 20060807

REACTIONS (2)
  - Diarrhoea [Recovered/Resolved]
  - Pulmonary embolism [Fatal]

NARRATIVE: CASE EVENT DATE: 20060801
